FAERS Safety Report 5611859-4 (Version None)
Quarter: 2008Q1

REPORT INFORMATION
  Report Type: 
  Country: None (occurrence: None)
  Receive Date: 20080204
  Receipt Date: 20080129
  Transmission Date: 20080703
  Serious: Yes (Hospitalization, Other)
  Sender: FDA-Public Use
  Company Number: DE-WYE-G00882608

PATIENT
  Sex: Female
  Weight: 70 kg

DRUGS (4)
  1. TREVILOR RETARD [Suspect]
     Dosage: 40 TABLETS (OVERDOSE AMOUNT 6000MG)
     Route: 048
     Dates: start: 20080112, end: 20080112
  2. ATOSIL [Suspect]
     Dosage: OVERDOSE AMOUNT UNKNOWN
     Route: 048
     Dates: start: 20080112, end: 20080112
  3. OPIPRAMOL [Suspect]
     Dosage: OVERDOSE AMOUNT UNKNOWN
     Route: 048
     Dates: start: 20080112, end: 20080112
  4. ETHANOL [Suspect]
     Dosage: A GREAT AMOUNT OF ALCOHOL (OVERDOSE AMOUNT UNKNOWN)
     Route: 048
     Dates: start: 20080112, end: 20080112

REACTIONS (5)
  - BREATH ODOUR [None]
  - DRUG ABUSE [None]
  - INTENTIONAL OVERDOSE [None]
  - RESTLESSNESS [None]
  - SOMNOLENCE [None]
